FAERS Safety Report 22735896 (Version 2)
Quarter: 2023Q4

REPORT INFORMATION
  Report Type: Report from Study
  Country: CA (occurrence: CA)
  Receive Date: 20230721
  Receipt Date: 20231109
  Transmission Date: 20240109
  Serious: Yes (Other)
  Sender: FDA-Public Use
  Company Number: CA-IPSEN Group, Research and Development-2022-33341

PATIENT
  Age: 78 Year
  Sex: Male

DRUGS (14)
  1. LANREOTIDE ACETATE [Suspect]
     Active Substance: LANREOTIDE ACETATE
     Indication: Gastroenteropancreatic neuroendocrine tumour disease
     Route: 058
     Dates: start: 20220225
  2. SANDOSTATIN [Concomitant]
     Active Substance: OCTREOTIDE ACETATE
     Dosage: 40 MG Q4 WEEKS
  3. PERINDOPRIL ERBUMINE [Concomitant]
     Active Substance: PERINDOPRIL ERBUMINE
  4. BRINZOLAMIDE [Concomitant]
     Active Substance: BRINZOLAMIDE
  5. BISOPROLOL [Concomitant]
     Active Substance: BISOPROLOL\BISOPROLOL FUMARATE
  6. XARELTO [Concomitant]
     Active Substance: RIVAROXABAN
  7. JAMP DUTASTERIDE [Concomitant]
  8. TIMOLOL MALEATE\TRAVOPROST [Concomitant]
     Active Substance: TIMOLOL MALEATE\TRAVOPROST
  9. TAMSULOSIN [Concomitant]
     Active Substance: TAMSULOSIN
  10. JAMCIMASTATIN [Concomitant]
  11. FUROSEMIDE [Concomitant]
     Active Substance: FUROSEMIDE
  12. VITAMIN 12 [Concomitant]
  13. VITAMIN D [Concomitant]
     Active Substance: VITAMIN D NOS
  14. POTASSIUM [Concomitant]
     Active Substance: POTASSIUM

REACTIONS (8)
  - Dementia Alzheimer^s type [Not Recovered/Not Resolved]
  - Hypoglycaemia [Recovered/Resolved]
  - Blood pressure decreased [Not Recovered/Not Resolved]
  - Depression [Unknown]
  - Malaise [Unknown]
  - Dizziness [Unknown]
  - Asthenia [Recovered/Resolved]
  - Hypotension [Recovered/Resolved]

NARRATIVE: CASE EVENT DATE: 20221202
